FAERS Safety Report 21948911 (Version 2)
Quarter: 2023Q1

REPORT INFORMATION
  Report Type: Spontaneous
  Country: GB (occurrence: GB)
  Receive Date: 20230203
  Receipt Date: 20230305
  Transmission Date: 20230417
  Serious: Yes (Other)
  Sender: FDA-Public Use
  Company Number: GB-AUROBINDO-AUR-APL-2023-004097

PATIENT
  Age: 23 Year
  Sex: Male

DRUGS (16)
  1. OLANZAPINE [Suspect]
     Active Substance: OLANZAPINE
     Indication: Schizophrenia
     Dosage: UNK
     Route: 048
     Dates: start: 2017
  2. PROPRANOLOL [Interacting]
     Active Substance: PROPRANOLOL HYDROCHLORIDE
     Indication: Hypertension
     Dosage: 40 MILLIGRAM, TWO TIMES A DAY
     Route: 065
  3. QUETIAPINE [Suspect]
     Active Substance: QUETIAPINE
     Indication: Schizophrenia
     Dosage: UNK
     Route: 065
     Dates: start: 2019
  4. RISPERIDONE [Suspect]
     Active Substance: RISPERIDONE
     Indication: Schizophrenia
     Dosage: UNK
     Route: 065
     Dates: start: 2018
  5. ZUCLOPENTHIXOL [Suspect]
     Active Substance: ZUCLOPENTHIXOL
     Indication: Schizophrenia
     Dosage: 250 MILLIGRAM, EVERY WEEK
     Route: 030
     Dates: start: 201912
  6. CLOZAPINE [Interacting]
     Active Substance: CLOZAPINE
     Indication: Schizophrenia
     Dosage: UNK
     Route: 065
     Dates: start: 20210315
  7. CLOZAPINE [Interacting]
     Active Substance: CLOZAPINE
     Dosage: 450 MILLIGRAM (GIVEN IN DIVIDED DOSES)
     Route: 065
     Dates: start: 20210419
  8. CLOZAPINE [Interacting]
     Active Substance: CLOZAPINE
     Dosage: 600 MILLIGRAM, ONCE A DAY (IN DIVIDED DOSES.)
     Route: 065
  9. CLOZAPINE [Interacting]
     Active Substance: CLOZAPINE
     Dosage: 575 MILLIGRAM, ONCE A DAY
     Route: 065
     Dates: start: 20210712
  10. LANSOPRAZOLE [Interacting]
     Active Substance: LANSOPRAZOLE
     Indication: Gastrooesophageal reflux disease
     Dosage: 30 MILLIGRAM, EVERY MORNING
     Route: 065
  11. LORAZEPAM [Interacting]
     Active Substance: LORAZEPAM
     Indication: Product used for unknown indication
     Dosage: 1MG UP TO 4MG A DAY
     Route: 065
  12. PALIPERIDONE [Suspect]
     Active Substance: PALIPERIDONE
     Indication: Schizophrenia
     Dosage: 150 MILLIGRAM, MONTHLY
     Route: 030
     Dates: start: 202002
  13. SIMVASTATIN [Concomitant]
     Active Substance: SIMVASTATIN
     Indication: Dyslipidaemia
     Dosage: 20 MILLIGRAM, ONCE A DAY (AT NIGHT)
     Route: 065
  14. ZOLPIDEM [Concomitant]
     Active Substance: ZOLPIDEM TARTRATE
     Indication: Schizophrenia
     Dosage: 10 MILLIGRAM (AT NIGHT)
     Route: 065
  15. LAMOTRIGINE [Concomitant]
     Active Substance: LAMOTRIGINE
     Indication: Seizure prophylaxis
     Dosage: 25 MILLIGRAM, ONCE A DAY
     Route: 065
     Dates: start: 20210820
  16. LAMOTRIGINE [Concomitant]
     Active Substance: LAMOTRIGINE
     Dosage: 50 MILLIGRAM, ONCE A DAY
     Route: 065
     Dates: start: 20210906

REACTIONS (4)
  - Salivary hypersecretion [Unknown]
  - Constipation [Unknown]
  - Drug interaction [Unknown]
  - Drug ineffective [Unknown]
